FAERS Safety Report 26189727 (Version 1)
Quarter: 2025Q4

REPORT INFORMATION
  Report Type: Spontaneous
  Country: JP (occurrence: JP)
  Receive Date: 20251223
  Receipt Date: 20251223
  Transmission Date: 20260117
  Serious: Yes (Hospitalization, Other)
  Sender: Haleon PLC
  Company Number: JP-002147023-NVSJ2025JP012165

PATIENT
  Age: 45 Year
  Sex: Male

DRUGS (1)
  1. VOLTAREN [Suspect]
     Active Substance: DICLOFENAC SODIUM
     Indication: Pain
     Dosage: 50 MG

REACTIONS (5)
  - Ileus paralytic [Not Recovered/Not Resolved]
  - Peritonitis [Unknown]
  - Small intestinal perforation [Unknown]
  - Pyrexia [Unknown]
  - Abdominal distension [Unknown]
